FAERS Safety Report 10020921 (Version 1)
Quarter: 2014Q1

REPORT INFORMATION
  Report Type: Spontaneous
  Country: SE (occurrence: None)
  Receive Date: 20140313
  Receipt Date: 20140313
  Transmission Date: 20141002
  Serious: Yes (Other)
  Sender: FDA-Public Use
  Company Number: NL01PV14.35472

PATIENT
  Sex: Female

DRUGS (3)
  1. UNKNOWN (ZOLPIDEM) TABLET [Suspect]
     Dosage: 1 OR 2 TABLETS AT 11PM AND 1 OR 2 AT 4 PM?
  2. ATARAX /00058401/ (HYDROXYZINE) [Suspect]
     Dosage: 2 OR3 TABLETS
  3. CITALOPRAM (CITALOPRAM) [Concomitant]

REACTIONS (4)
  - Confusional state [None]
  - Road traffic accident [None]
  - Drug abuse [None]
  - Stress [None]
